FAERS Safety Report 23726816 (Version 3)
Quarter: 2024Q3

REPORT INFORMATION
  Report Type: Spontaneous
  Country: ES (occurrence: ES)
  Receive Date: 20240410
  Receipt Date: 20240814
  Transmission Date: 20241016
  Serious: Yes (Other)
  Sender: RANBAXY
  Company Number: ES-SUN PHARMACEUTICAL INDUSTRIES LTD-2024R1-440571

PATIENT
  Age: 42 Year
  Sex: Female

DRUGS (3)
  1. LITHIUM CARBONATE [Suspect]
     Active Substance: LITHIUM CARBONATE
     Indication: Bipolar disorder
     Dosage: UNK
     Route: 065
  2. ASENAPINE [Suspect]
     Active Substance: ASENAPINE
     Indication: Bipolar disorder
     Dosage: UNK
     Route: 065
  3. ASENAPINE [Suspect]
     Active Substance: ASENAPINE

REACTIONS (4)
  - Exposure during pregnancy [Unknown]
  - Polyhydramnios [Unknown]
  - Premature delivery [Unknown]
  - Nephrogenic diabetes insipidus [Not Recovered/Not Resolved]
